FAERS Safety Report 6288688-4 (Version None)
Quarter: 2009Q3

REPORT INFORMATION
  Report Type: 
  Country: None (occurrence: None)
  Receive Date: 20090727
  Receipt Date: 20090713
  Transmission Date: 20100115
  Serious: Yes (Disabling, Other)
  Sender: FDA-Public Use
  Company Number: ADE2009-0559

PATIENT
  Age: 78 Year
  Sex: Male

DRUGS (4)
  1. SIMVASTATIN [Suspect]
     Indication: BRONCHOPULMONARY ASPERGILLOSIS
     Dosage: 40 MG, DAILY, ORAL
     Route: 048
     Dates: start: 20051101
  2. ITRACONAZOLE [Suspect]
     Dates: start: 20051201
  3. WARFARIN SODIUM [Concomitant]
  4. ZOLADEX [Concomitant]

REACTIONS (7)
  - ABASIA [None]
  - BLOOD CREATINE PHOSPHOKINASE INCREASED [None]
  - BRONCHOPULMONARY ASPERGILLOSIS [None]
  - MUSCLE CONTRACTIONS INVOLUNTARY [None]
  - MYOPATHY [None]
  - POLYNEUROPATHY [None]
  - UBIQUINONE DECREASED [None]
